FAERS Safety Report 14630454 (Version 1)
Quarter: 2018Q1

REPORT INFORMATION
  Report Type: Spontaneous
  Country: US (occurrence: US)
  Receive Date: 20180313
  Receipt Date: 20180313
  Transmission Date: 20180509
  Serious: Yes (Life-Threatening, Disabling)
  Sender: FDA-Public Use
  Company Number: None

PATIENT
  Age: 68 Year
  Sex: Female
  Weight: 63.9 kg

DRUGS (11)
  1. VITAMIN E [Concomitant]
     Active Substance: .ALPHA.-TOCOPHEROL
  2. GADALINIUM-DON^T HAVE BOX [Suspect]
     Active Substance: GADOLINIUM
     Indication: NUCLEAR MAGNETIC RESONANCE IMAGING BRAIN
     Dosage: ?          OTHER FREQUENCY:1-2 TIMES YRMRI;OTHER ROUTE:INJECTED CONTRAST DYE?
  3. VITAMIN D [Concomitant]
     Active Substance: CHOLECALCIFEROL
  4. LICORICE TEA [Concomitant]
  5. GADALINIUM-DON^T HAVE BOX [Suspect]
     Active Substance: GADOLINIUM
     Indication: SCAN WITH CONTRAST
     Dosage: ?          OTHER FREQUENCY:1-2 TIMES YRMRI;OTHER ROUTE:INJECTED CONTRAST DYE?
  6. LAMICTAL [Concomitant]
     Active Substance: LAMOTRIGINE
  7. LEVYTHROXINE [Concomitant]
  8. VITAMIN B [Concomitant]
     Active Substance: VITAMIN B
  9. MULTI VITAMIN [Concomitant]
     Active Substance: VITAMINS
  10. VITAMIN C [Concomitant]
     Active Substance: ASCORBIC ACID
  11. MINT TEA [Concomitant]

REACTIONS (13)
  - Toxicity to various agents [None]
  - Pain in extremity [None]
  - Erythema [None]
  - Musculoskeletal chest pain [None]
  - Tinnitus [None]
  - Asthenia [None]
  - Hypoaesthesia [None]
  - Contrast media reaction [None]
  - Gait disturbance [None]
  - Pruritus [None]
  - Dry skin [None]
  - Rash macular [None]
  - Hemiparesis [None]

NARRATIVE: CASE EVENT DATE: 20130105
